FAERS Safety Report 17780031 (Version 1)
Quarter: 2020Q2

REPORT INFORMATION
  Report Type: Spontaneous
  Country: US (occurrence: US)
  Receive Date: 20200514
  Receipt Date: 20200514
  Transmission Date: 20200714
  Serious: No
  Sender: FDA-Public Use
  Company Number: US-BRISTOL-MYERS SQUIBB COMPANY-BMS-2020-037875

PATIENT
  Sex: Female
  Weight: 55.34 kg

DRUGS (2)
  1. OPDIVO [Suspect]
     Active Substance: NIVOLUMAB
     Indication: RENAL CELL CARCINOMA
     Dosage: UNK UNK, Q3WK
     Route: 042
     Dates: start: 2020
  2. YERVOY [Suspect]
     Active Substance: IPILIMUMAB
     Indication: RENAL CELL CARCINOMA
     Dosage: UNK UNK, Q3WK
     Route: 042
     Dates: start: 2020

REACTIONS (2)
  - Gait disturbance [Unknown]
  - Mobility decreased [Unknown]
